FAERS Safety Report 5332522-3 (Version None)
Quarter: 2007Q2

REPORT INFORMATION
  Report Type: 
  Country: None (occurrence: None)
  Receive Date: 20070523
  Receipt Date: 20070523
  Transmission Date: 20071010
  Serious: Yes (Hospitalization)
  Sender: FDA-Public Use
  Company Number: HQWYE850311AUG05

PATIENT
  Age: 84 Year
  Sex: Male

DRUGS (7)
  1. CORDARONE [Suspect]
     Indication: TACHYCARDIA
     Route: 048
     Dates: start: 20010615, end: 20050524
  2. MEXITIL [Concomitant]
     Dosage: UNSPECIFIED
     Route: 048
     Dates: end: 20050501
  3. LASIX [Concomitant]
  4. ALPRESS [Concomitant]
     Dosage: UNSPECIFIED
     Route: 048
     Dates: end: 20050528
  5. ELISOR [Concomitant]
     Dosage: UNSPECIFIED
     Route: 048
  6. NITRODERM [Concomitant]
     Dosage: UNSPECIFIED
     Route: 062
  7. TRIATEC [Concomitant]
     Dosage: UNSPECIFIED
     Route: 048

REACTIONS (5)
  - BLOOD ALKALINE PHOSPHATASE INCREASED [None]
  - GAMMA-GLUTAMYLTRANSFERASE INCREASED [None]
  - GENERAL PHYSICAL HEALTH DETERIORATION [None]
  - JAUNDICE [None]
  - WEIGHT DECREASED [None]
